FAERS Safety Report 18316339 (Version 1)
Quarter: 2020Q3

REPORT INFORMATION
  Report Type: Spontaneous
  Country: US (occurrence: US)
  Receive Date: 20200927
  Receipt Date: 20200927
  Transmission Date: 20201103
  Serious: No
  Sender: FDA-Public Use
  Company Number: US-JNJFOC-20200931240

PATIENT
  Age: 5 Decade
  Sex: Male
  Weight: 93.07 kg

DRUGS (1)
  1. ZYRTEC [Suspect]
     Active Substance: CETIRIZINE HYDROCHLORIDE
     Indication: HYPERSENSITIVITY
     Dosage: START DATE: FEW WEEKS AGO; LAST ADMIN DATE : 15?SEP?2020
     Route: 048

REACTIONS (1)
  - Drug ineffective [Unknown]
